FAERS Safety Report 6266928-5 (Version None)
Quarter: 2009Q3

REPORT INFORMATION
  Report Type: 
  Country: None (occurrence: None)
  Receive Date: 20090710
  Receipt Date: 20090710
  Transmission Date: 20100115
  Serious: Yes (Death)
  Sender: FDA-Public Use
  Company Number: None

PATIENT
  Age: 40 Year
  Sex: Male
  Weight: 44.3 kg

DRUGS (7)
  1. TRUVADA [Suspect]
     Indication: HIV INFECTION
     Dosage: 200/300 MG ONCE DAILY PER OS
     Dates: start: 20090128, end: 20090619
  2. EFAVIRENZ [Suspect]
     Indication: HIV INFECTION
     Dosage: 600 MG ONCE DAILY PER OS
     Dates: start: 20090128, end: 20090619
  3. COTRIM [Concomitant]
  4. RIFAMPICIN [Concomitant]
  5. ETHAMBUTOL [Concomitant]
  6. PYRAZINAMIDE [Concomitant]
  7. ISONIAZID [Concomitant]

REACTIONS (14)
  - BACTERIAL SEPSIS [None]
  - BLOOD ALBUMIN DECREASED [None]
  - BLOOD CREATININE INCREASED [None]
  - BLOOD PHOSPHORUS DECREASED [None]
  - BLOOD POTASSIUM DECREASED [None]
  - BLOOD PRESSURE DIASTOLIC DECREASED [None]
  - BLOOD UREA INCREASED [None]
  - DEHYDRATION [None]
  - EOSINOPHIL PERCENTAGE INCREASED [None]
  - MENINGITIS TUBERCULOUS [None]
  - PNEUMONIA BACTERIAL [None]
  - RED BLOOD CELL COUNT DECREASED [None]
  - SPEECH DISORDER [None]
  - WEIGHT DECREASED [None]
